FAERS Safety Report 6643509-2 (Version None)
Quarter: 2010Q1

REPORT INFORMATION
  Report Type: 
  Country: None (occurrence: None)
  Receive Date: 20100319
  Receipt Date: 20100311
  Transmission Date: 20100710
  Serious: No
  Sender: FDA-Public Use
  Company Number: US-AMGEN-QUU395923

PATIENT
  Sex: Male

DRUGS (7)
  1. ENBREL [Suspect]
     Indication: PSORIASIS
     Route: 058
     Dates: start: 20081001, end: 20100201
  2. LISINOPRIL [Concomitant]
  3. CITALOPRAM [Concomitant]
  4. RANITIDINE [Concomitant]
  5. LORAZEPAM [Concomitant]
  6. MULTIPLE VITAMINS [Concomitant]
  7. COD-LIVER OIL [Concomitant]

REACTIONS (4)
  - DEMYELINATION [None]
  - DYSAESTHESIA [None]
  - HYPOAESTHESIA [None]
  - PARAESTHESIA [None]
